FAERS Safety Report 9150142 (Version 1)
Quarter: 2013Q1

REPORT INFORMATION
  Report Type: Spontaneous
  Country: LB (occurrence: LB)
  Receive Date: 20130308
  Receipt Date: 20130308
  Transmission Date: 20140127
  Serious: Yes (Other)
  Sender: FDA-Public Use
  Company Number: LB-SANOFI-AVENTIS-2013SA021282

PATIENT
  Age: 41 Year
  Sex: Male

DRUGS (7)
  1. ELOXATIN [Suspect]
     Indication: COLON CANCER
     Dosage: DOSING: 125 MG, THEN 140 MG EVERY 2 WEEKS
     Route: 042
     Dates: start: 201010, end: 201107
  2. PREDNISONE [Concomitant]
  3. MOTILIUM [Concomitant]
  4. GASTRIMUT [Concomitant]
  5. TELFAST [Concomitant]
  6. KYTRIL [Concomitant]
  7. ZYPREXA [Concomitant]

REACTIONS (9)
  - Pulmonary mass [Not Recovered/Not Resolved]
  - Nail disorder [Unknown]
  - Onychoclasis [Unknown]
  - Influenza like illness [Unknown]
  - Neuropathy peripheral [Unknown]
  - Infusion site reaction [Unknown]
  - Infusion site pain [Unknown]
  - Infusion site pain [Unknown]
  - Infusion site pain [Unknown]
